FAERS Safety Report 11578821 (Version 1)
Quarter: 2015Q3

REPORT INFORMATION
  Report Type: Spontaneous
  Country: US (occurrence: US)
  Receive Date: 20150916
  Receipt Date: 20150916
  Transmission Date: 20151125
  Serious: No
  Sender: FDA-Public Use
  Company Number: US-ELI_LILLY_AND_COMPANY-US201307005334

PATIENT
  Sex: Male

DRUGS (2)
  1. HUMALOG MIX50/50 [Suspect]
     Active Substance: INSULIN LISPRO
     Dosage: UNK UNK, UNKNOWN
  2. LANTUS [Concomitant]
     Active Substance: INSULIN GLARGINE
     Dosage: UNK, UNKNOWN

REACTIONS (8)
  - Blood glucose increased [Unknown]
  - Headache [Unknown]
  - Abnormal behaviour [Unknown]
  - Anxiety [Unknown]
  - Foaming at mouth [Unknown]
  - Expired product administered [Unknown]
  - Aphasia [Unknown]
  - Incorrect dose administered [Unknown]
